FAERS Safety Report 8565582-7 (Version None)
Quarter: 2012Q3

REPORT INFORMATION
  Report Type: 
  Country: None (occurrence: None)
  Receive Date: 20120803
  Receipt Date: 20120726
  Transmission Date: 20120928
  Serious: Yes (Hospitalization, Other)
  Sender: FDA-Public Use
  Company Number: JP-PFIZER INC-2012172220

PATIENT

DRUGS (4)
  1. VECURONIUM BROMIDE [Suspect]
     Indication: HYPOTHERMIA
     Dosage: UNK
  2. PROPOFOL [Suspect]
     Indication: HYPOTHERMIA
     Dosage: UNK
  3. AMIODARONE HYDROCHLORIDE [Suspect]
     Indication: ARRHYTHMIA
     Dosage: 125 MG PER TEN MINUTES
     Route: 042
  4. AMIODARONE HYDROCHLORIDE [Suspect]
     Indication: CARDIO-RESPIRATORY ARREST
     Dosage: 750 MG, DAILY
     Route: 042

REACTIONS (4)
  - VENTRICULAR FIBRILLATION [None]
  - ELECTROCARDIOGRAM QT PROLONGED [None]
  - BRADYCARDIA [None]
  - VENTRICULAR EXTRASYSTOLES [None]
